FAERS Safety Report 24287129 (Version 1)
Quarter: 2024Q3

REPORT INFORMATION
  Report Type: Spontaneous
  Country: US (occurrence: US)
  Receive Date: 20240905
  Receipt Date: 20240905
  Transmission Date: 20241016
  Serious: Yes (Other)
  Sender: GLAXOSMITHKLINE
  Company Number: US-GLAXOSMITHKLINE-US2024AMR108260

PATIENT

DRUGS (3)
  1. IMITREX [Suspect]
     Active Substance: SUMATRIPTAN SUCCINATE
     Indication: Migraine
     Dosage: 100 MG, PRN
     Route: 048
     Dates: start: 2013
  2. TYLENOL [Suspect]
     Active Substance: ACETAMINOPHEN
     Indication: Migraine
     Dosage: UNK; 1000-2000 MG; PRN
     Route: 048
  3. IRON [Concomitant]
     Active Substance: IRON
     Indication: Anaemia
     Dosage: 200 MG, Q4W
     Route: 042
     Dates: start: 20240308, end: 2024

REACTIONS (1)
  - Delivery [Recovered/Resolved]

NARRATIVE: CASE EVENT DATE: 20240613
